FAERS Safety Report 8486012-X (Version None)
Quarter: 2012Q3

REPORT INFORMATION
  Report Type: 
  Country: None (occurrence: None)
  Receive Date: 20120703
  Receipt Date: 20120622
  Transmission Date: 20120928
  Serious: Yes (Other)
  Sender: FDA-Public Use
  Company Number: JP-VERTEX PHARMACEUTICALS INC.-AE-2012-009485

PATIENT
  Age: 66 Year
  Sex: Female

DRUGS (12)
  1. PEG-INTRON [Concomitant]
     Route: 058
     Dates: start: 20120523
  2. FERROUS CITRATE [Concomitant]
     Route: 048
  3. TELAVIC (TELAPREVIR) [Suspect]
     Indication: HEPATITIS C
     Route: 048
     Dates: start: 20120308, end: 20120417
  4. PEG-INTRON [Concomitant]
     Route: 058
     Dates: start: 20120321, end: 20120403
  5. TELAVIC (TELAPREVIR) [Suspect]
     Route: 048
     Dates: start: 20120418
  6. REBETOL [Concomitant]
     Route: 048
     Dates: start: 20120404
  7. PEG-INTRON [Concomitant]
     Route: 058
     Dates: start: 20120307, end: 20120313
  8. PEG-INTRON [Concomitant]
     Route: 058
     Dates: start: 20120314, end: 20120320
  9. REBETOL [Concomitant]
     Indication: HEPATITIS C
     Route: 048
     Dates: start: 20120307, end: 20120403
  10. PEG-INTRON [Concomitant]
     Route: 058
     Dates: start: 20120418, end: 20120516
  11. URSO 250 [Concomitant]
     Route: 048
  12. PEG-INTRON [Concomitant]
     Route: 058
     Dates: start: 20120404

REACTIONS (1)
  - WHITE BLOOD CELL COUNT DECREASED [None]
